FAERS Safety Report 7319903-3 (Version None)
Quarter: 2011Q1

REPORT INFORMATION
  Report Type: 
  Country: None (occurrence: None)
  Receive Date: 20110214
  Receipt Date: 20110207
  Transmission Date: 20110831
  Serious: Yes (Hospitalization)
  Sender: FDA-Public Use
  Company Number: 2011VX000460

PATIENT
  Age: 43 Year
  Sex: Male

DRUGS (3)
  1. FLUOROURACIL [Suspect]
     Indication: PRODUCT USED FOR UNKNOWN INDICATION
     Dosage: 30 MG/KG; IV
     Route: 042
  2. PREV MEDS [Concomitant]
  3. CON MEDS [Concomitant]

REACTIONS (4)
  - HAEMODIALYSIS [None]
  - DEVICE MALFUNCTION [None]
  - OVERDOSE [None]
  - TOXICITY TO VARIOUS AGENTS [None]
